FAERS Safety Report 22291868 (Version 5)
Quarter: 2024Q3

REPORT INFORMATION
  Report Type: Spontaneous
  Country: CA (occurrence: CA)
  Receive Date: 20230507
  Receipt Date: 20240812
  Transmission Date: 20241016
  Serious: Yes (Other)
  Sender: ROCHE
  Company Number: CA-ROCHE-3344415

PATIENT
  Age: 30 Year
  Sex: Female

DRUGS (12)
  1. RITUXIMAB [Suspect]
     Active Substance: RITUXIMAB
     Indication: Antisynthetase syndrome
     Route: 041
  2. ENTYVIO [Suspect]
     Active Substance: VEDOLIZUMAB
     Indication: Crohn^s disease
     Route: 065
  3. ACETAMINOPHEN [Concomitant]
     Active Substance: ACETAMINOPHEN
     Route: 048
  4. ACETAMINOPHEN [Concomitant]
     Active Substance: ACETAMINOPHEN
     Route: 048
  5. CALCIUM [Concomitant]
     Active Substance: CALCIUM
  6. DIPHENHYDRAMINE [Concomitant]
     Active Substance: DIPHENHYDRAMINE
     Route: 048
  7. ERGOCALCIFEROL [Concomitant]
     Active Substance: ERGOCALCIFEROL
  8. FOLIC ACID [Concomitant]
     Active Substance: FOLIC ACID
  9. HYDROXYCHLOROQUINE [Concomitant]
     Active Substance: HYDROXYCHLOROQUINE
  10. METHOTREXATE [Concomitant]
     Active Substance: METHOTREXATE
     Route: 048
  11. PREDNISONE [Concomitant]
     Active Substance: PREDNISONE
  12. METHYLPREDNISOLONE [Concomitant]
     Active Substance: METHYLPREDNISOLONE

REACTIONS (32)
  - COVID-19 [Recovered/Resolved]
  - Ear infection [Recovered/Resolved]
  - Ear pain [Recovered/Resolved]
  - Eye infection [Recovered/Resolved]
  - Hypothermia [Recovered/Resolved]
  - Nasal congestion [Recovered/Resolved]
  - Off label use [Unknown]
  - Abdominal discomfort [Recovered/Resolved]
  - Abdominal pain upper [Recovered/Resolved]
  - Acne [Recovered/Resolved]
  - Bladder discomfort [Recovered/Resolved]
  - Diarrhoea [Recovered/Resolved]
  - Gastrooesophageal reflux disease [Recovered/Resolved]
  - Mouth ulceration [Recovered/Resolved]
  - Abdominal pain [Recovered/Resolved]
  - Arthralgia [Recovered/Resolved]
  - Sinusitis [Recovered/Resolved]
  - Weight decreased [Recovered/Resolved]
  - Jaw disorder [Recovered/Resolved]
  - Ovarian cyst [Recovered/Resolved]
  - Pneumonia [Recovered/Resolved]
  - Toothache [Recovered/Resolved]
  - Upper respiratory tract infection [Recovered/Resolved]
  - Urine odour abnormal [Recovered/Resolved]
  - Arthralgia [Unknown]
  - Bronchitis [Recovered/Resolved]
  - Cough [Recovered/Resolved]
  - Dyspnoea [Recovered/Resolved]
  - General physical health deterioration [Recovered/Resolved]
  - Headache [Recovered/Resolved]
  - Immunodeficiency [Recovered/Resolved]
  - Post procedural infection [Recovered/Resolved]
